FAERS Safety Report 9301505 (Version 1)
Quarter: 2013Q2

REPORT INFORMATION
  Report Type: Other
  Country: GB (occurrence: GB)
  Receive Date: 20130521
  Receipt Date: 20130521
  Transmission Date: 20140414
  Serious: Yes (Other)
  Sender: FDA-Public Use
  Company Number: GB-WATSON-2013-08309

PATIENT
  Age: 59 Year
  Sex: Female

DRUGS (6)
  1. RAMIPRIL (UNKNOWN) [Suspect]
     Indication: HYPERTENSION
     Dosage: 5 MG, UNKNOWN
     Route: 065
     Dates: start: 20130409, end: 20130412
  2. SIMVASTATIN (UNKNOWN) [Suspect]
     Indication: BLOOD CHOLESTEROL INCREASED
     Dosage: 20 MG, UNKNOWN
     Route: 065
     Dates: start: 20130409, end: 20130412
  3. IBUPROFEN [Concomitant]
     Indication: PAIN
     Dosage: 400 MG, UNKNOWN
     Route: 048
  4. CITALOPRAM [Concomitant]
     Indication: DEPRESSION
     Dosage: 10 MG, UNKNOWN
     Route: 048
     Dates: start: 20130125
  5. VENTOLIN                           /00139501/ [Concomitant]
     Indication: ASTHMA
     Dosage: 100-200 AS NEEDED. AS NECESSARY. EVO
     Route: 055
  6. PARACETAMOL [Concomitant]
     Indication: PAIN
     Dosage: 500-1000 AS NEEDED. AS NECESSARY.
     Route: 048

REACTIONS (3)
  - Swollen tongue [Recovering/Resolving]
  - Glossodynia [Recovering/Resolving]
  - Lymphadenopathy [Recovering/Resolving]
